FAERS Safety Report 7442605-X (Version None)
Quarter: 2011Q2

REPORT INFORMATION
  Report Type: 
  Country: None (occurrence: None)
  Receive Date: 20110428
  Receipt Date: 20110418
  Transmission Date: 20111010
  Serious: Yes (Hospitalization)
  Sender: FDA-Public Use
  Company Number: PHHY2011NO32107

PATIENT
  Sex: Male

DRUGS (3)
  1. METHOTREXATE [Suspect]
     Indication: PSORIASIS
     Dosage: 5 MG, QW
     Route: 048
  2. FOLIC ACID [Concomitant]
  3. METHOTREXATE [Suspect]
     Dosage: 10 MG, QW
     Route: 048

REACTIONS (7)
  - DIZZINESS [None]
  - INCORRECT DOSE ADMINISTERED [None]
  - ANAEMIA MEGALOBLASTIC [None]
  - DYSPNOEA [None]
  - FATIGUE [None]
  - VITAMIN B12 DEFICIENCY [None]
  - FOLATE DEFICIENCY [None]
